FAERS Safety Report 9005964 (Version 1)
Quarter: 2013Q1

REPORT INFORMATION
  Report Type: Spontaneous
  Country: US (occurrence: US)
  Receive Date: 20130110
  Receipt Date: 20130110
  Transmission Date: 20140127
  Serious: Yes (Life-Threatening, Disabling)
  Sender: FDA-Public Use
  Company Number: US-009507513-0901USA02233

PATIENT
  Age: 13 Year
  Sex: Male
  Weight: 42.18 kg

DRUGS (4)
  1. SINGULAIR [Suspect]
     Indication: ASTHMA
     Dosage: 1 DF, UNK
     Route: 048
  2. ALBUTEROL [Concomitant]
  3. CLARITIN [Concomitant]
  4. ZYRTEC [Concomitant]
     Dosage: UNK UNK, PRN

REACTIONS (10)
  - Suicidal ideation [Recovering/Resolving]
  - Abdominal pain upper [Recovering/Resolving]
  - Abnormal behaviour [Recovering/Resolving]
  - Aggression [Recovering/Resolving]
  - Amnesia [Recovering/Resolving]
  - Anger [Recovering/Resolving]
  - Decreased interest [Recovering/Resolving]
  - Depression [Recovering/Resolving]
  - Insomnia [Recovering/Resolving]
  - Nightmare [Recovering/Resolving]
